FAERS Safety Report 5879059-0 (Version None)
Quarter: 2008Q3

REPORT INFORMATION
  Report Type: 
  Country: None (occurrence: None)
  Receive Date: 20080912
  Receipt Date: 20080903
  Transmission Date: 20090109
  Serious: Yes (Hospitalization)
  Sender: FDA-Public Use
  Company Number: GR-NOVOPROD-278156

PATIENT
  Sex: Female
  Weight: 78 kg

DRUGS (4)
  1. NOVOLOG MIX 70/30 [Suspect]
     Indication: DIABETES MELLITUS
     Dosage: 60 IU, QD
     Route: 058
     Dates: start: 20080214, end: 20080726
  2. LISINOPRIL [Concomitant]
     Dosage: 20 MG, QD
     Route: 048
  3. ATORVASTATIN [Concomitant]
     Dosage: 20 MG, QD
  4. AMLODIPINE [Concomitant]
     Dosage: 5 MG, QD

REACTIONS (2)
  - FALL [None]
  - HYPOGLYCAEMIC UNCONSCIOUSNESS [None]
